FAERS Safety Report 20530580 (Version 1)
Quarter: 2022Q1

REPORT INFORMATION
  Report Type: Spontaneous
  Country: DK (occurrence: DK)
  Receive Date: 20220301
  Receipt Date: 20220301
  Transmission Date: 20220423
  Serious: Yes (Death, Hospitalization, Other)
  Sender: FDA-Public Use
  Company Number: DK-AMGEN-DNKSP2022031470

PATIENT
  Age: 25 Year
  Sex: Female

DRUGS (8)
  1. PEGFILGRASTIM [Suspect]
     Active Substance: PEGFILGRASTIM
     Indication: Prophylaxis
     Dosage: 6 MILLIGRAM, Q3WK, D7 EVERY 3 WEEKS, 2 COURSES
     Route: 058
  2. FILGRASTIM [Suspect]
     Active Substance: FILGRASTIM
     Indication: Prophylaxis
     Route: 065
  3. DARATUMUMAB [Concomitant]
     Active Substance: DARATUMUMAB
     Indication: T-cell type acute leukaemia
     Dosage: 16 MILLIGRAM/KILOGRAM, QWK, D 1 WEEKLY FOR 8 WEEKS AND THEREAFTER EVERY 2 WEEKS TILL RELAPSE (TOTAL
     Route: 042
  4. DARATUMUMAB [Concomitant]
     Active Substance: DARATUMUMAB
     Dosage: 16 MILLIGRAM/KILOGRAM, Q2WK TILL RELAPSE (TOTAL 17 INFUSIONS)
     Route: 042
  5. NELARABINE [Concomitant]
     Active Substance: NELARABINE
     Indication: T-cell type acute leukaemia
     Dosage: 1500 MILLIGRAM/SQ. METER 3, 5 EVERY 3 WEEKS, 2 COURSES
     Route: 065
  6. DEXAMETHASONE [Concomitant]
     Active Substance: DEXAMETHASONE
     Indication: T-cell type acute leukaemia
     Dosage: 40 MILLIGRAM, Q2WK, D1-4, EVERY TWO WEEKS, 2 COURSES
     Route: 065
  7. ETOPOSIDE [Concomitant]
     Active Substance: ETOPOSIDE
     Indication: T-cell type acute leukaemia
     Dosage: 1800 MILLIGRAM/SQ. METER
  8. INFLIXIMAB [Concomitant]
     Active Substance: INFLIXIMAB
     Indication: T-cell type acute leukaemia
     Dosage: 10 MILLIGRAM/KILOGRAM, QWK, FOUR COURSES

REACTIONS (19)
  - Death [Fatal]
  - Superior vena cava syndrome [Unknown]
  - Lymphoma [Unknown]
  - Bone marrow disorder [Unknown]
  - Bacteraemia [Unknown]
  - Chronic graft versus host disease in liver [Unknown]
  - Chronic graft versus host disease in intestine [Unknown]
  - Sepsis [Unknown]
  - Leukaemia [Unknown]
  - Primary breast lymphoma [Unknown]
  - Thrombocytopenia [Unknown]
  - Minimal residual disease [Unknown]
  - Pleural effusion [Unknown]
  - Peripheral sensory neuropathy [Unknown]
  - Fungal infection [Unknown]
  - Fatigue [Unknown]
  - Myalgia [Unknown]
  - Bone marrow disorder [Unknown]
  - Therapy partial responder [Unknown]
